FAERS Safety Report 5402059-1 (Version None)
Quarter: 2007Q3

REPORT INFORMATION
  Report Type: 
  Country: None (occurrence: None)
  Receive Date: 20070727
  Receipt Date: 20070717
  Transmission Date: 20080115
  Serious: Yes (Hospitalization)
  Sender: FDA-Public Use
  Company Number: 39201

PATIENT
  Age: 66 Year
  Sex: Male

DRUGS (1)
  1. PACLITAXEL INJ. 30MG/5ML - BEDFORD LABS, INC [Suspect]
     Indication: ANGIOSARCOMA
     Dosage: 175 MG/M2

REACTIONS (7)
  - CUTIS LAXA [None]
  - DACRYOSTENOSIS ACQUIRED [None]
  - ECTROPION [None]
  - INTRAOCULAR PRESSURE INCREASED [None]
  - MUCOUS MEMBRANE DISORDER [None]
  - PUNCTATE KERATITIS [None]
  - SCAR [None]
